FAERS Safety Report 4900143-X (Version None)
Quarter: 2006Q1

REPORT INFORMATION
  Report Type: 
  Country: None (occurrence: None)
  Receive Date: 20060201
  Receipt Date: 20060120
  Transmission Date: 20060701
  Serious: Yes (Other)
  Sender: FDA-Public Use
  Company Number: 2006011140

PATIENT
  Sex: Female

DRUGS (7)
  1. NEURONTIN [Suspect]
     Indication: NEURALGIA
     Dosage: 900 MG (4 IN 1 D)
  2. METHOTREXATE [Suspect]
     Indication: SJOGREN'S SYNDROME
     Dosage: 7.5 MG, 1 IN 1 WK
     Dates: start: 20051201
  3. METHADONE HCL [Concomitant]
  4. AMBIEN [Concomitant]
  5. VERAPAMIL [Concomitant]
  6. PREMPHASE (PREMARIN;CYCRIN 14/14) [Concomitant]
  7. ALLEGRA [Concomitant]

REACTIONS (7)
  - ASTHENIA [None]
  - CONDITION AGGRAVATED [None]
  - DRUG INTERACTION [None]
  - FATIGUE [None]
  - FEELING ABNORMAL [None]
  - NAUSEA [None]
  - SJOGREN'S SYNDROME [None]
